FAERS Safety Report 6214011-7 (Version None)
Quarter: 2009Q2

REPORT INFORMATION
  Report Type: 
  Country: None (occurrence: None)
  Receive Date: 20090602
  Receipt Date: 20090601
  Transmission Date: 20091009
  Serious: Yes (Hospitalization)
  Sender: FDA-Public Use
  Company Number: SP02128

PATIENT
  Age: 76 Year
  Sex: Female

DRUGS (7)
  1. VISICOL [Suspect]
     Indication: ENDOSCOPY
     Dosage: 50 GM, ORAL
     Route: 048
     Dates: start: 20080729, end: 20080729
  2. ROSUVASATATIN CALCIUM [Concomitant]
  3. ETHYL ICOSAPENTATE [Concomitant]
  4. DIPYRIDAMOLE [Concomitant]
  5. MAGNESIUM CITRATE [Concomitant]
  6. SODIUM PISCOSULFATE [Concomitant]
  7. SENNOSIDE [Concomitant]

REACTIONS (3)
  - COLITIS ISCHAEMIC [None]
  - LARGE INTESTINAL ULCER [None]
  - PROCTALGIA [None]
